FAERS Safety Report 12230824 (Version 2)
Quarter: 2016Q3

REPORT INFORMATION
  Report Type: Spontaneous
  Country: US (occurrence: US)
  Receive Date: 20160401
  Receipt Date: 20160912
  Transmission Date: 20161109
  Serious: Yes (Hospitalization)
  Sender: FDA-Public Use
  Company Number: US-JNJFOC-20160301403

PATIENT
  Age: 56 Year
  Sex: Female

DRUGS (3)
  1. ASPIRIN. [Suspect]
     Active Substance: ASPIRIN
     Indication: PRODUCT USED FOR UNKNOWN INDICATION
     Route: 065
     Dates: end: 201512
  2. XARELTO [Suspect]
     Active Substance: RIVAROXABAN
     Indication: DEEP VEIN THROMBOSIS
     Dosage: 10-20 MG APPROXIMATELY, EXACT DOSAGE UNKNOWN
     Route: 048
     Dates: start: 20151207, end: 20151211
  3. XARELTO [Suspect]
     Active Substance: RIVAROXABAN
     Indication: DEEP VEIN THROMBOSIS
     Route: 048

REACTIONS (2)
  - Diverticulum intestinal haemorrhagic [Unknown]
  - Post procedural haemorrhage [Unknown]

NARRATIVE: CASE EVENT DATE: 201512
